FAERS Safety Report 8069054-8 (Version None)
Quarter: 2011Q4

REPORT INFORMATION
  Report Type: 
  Country: None (occurrence: None)
  Receive Date: 20111221
  Receipt Date: 20110310
  Transmission Date: 20120403
  Serious: Yes (Other)
  Sender: FDA-Public Use
  Company Number: PHHY2011US04724

PATIENT
  Sex: Male
  Weight: 78 kg

DRUGS (18)
  1. EXJADE [Suspect]
     Indication: MYELODYSPLASTIC SYNDROME
     Dosage: 1500 MG, DAILY, ORAL, 1000 MG, DAILY, ORAL
     Route: 048
     Dates: start: 20110104
  2. EXJADE [Suspect]
     Indication: MYELODYSPLASTIC SYNDROME
     Dosage: 1500 MG, DAILY, ORAL, 1000 MG, DAILY, ORAL
     Route: 048
     Dates: start: 20110103
  3. OXYCODONE HCL [Concomitant]
  4. LASIX [Concomitant]
  5. DILTIAZEM [Concomitant]
  6. FLOMAX [Concomitant]
  7. TRAZODONE HCL [Concomitant]
  8. CENTRUM SILVER (ASCORBIC ACID, CALCIUM, MINERALS NOS, RETINOL, TOCOPHE [Concomitant]
  9. GLUCOSAMINE (GLUCOSAMINE) [Concomitant]
  10. AVEENO LOTION [Concomitant]
  11. ENALAPRIL MALEATE [Concomitant]
  12. CHLORTHALIDONE [Concomitant]
  13. CRESTIR (ROSUVASTATIN CALCIUM) [Concomitant]
  14. VUDAZA (AZACITIDINE) [Concomitant]
  15. SUDAFED 12 HOUR [Concomitant]
  16. ADVAIR HFA [Concomitant]
  17. NEULASTA [Concomitant]
  18. FKIBASE (FLUTICASONE PROPIONATE) [Concomitant]

REACTIONS (2)
  - DIARRHOEA [None]
  - WHITE BLOOD CELL COUNT DECREASED [None]
